FAERS Safety Report 24589061 (Version 2)
Quarter: 2024Q4

REPORT INFORMATION
  Report Type: Spontaneous
  Country: US (occurrence: US)
  Receive Date: 20241107
  Receipt Date: 20241118
  Transmission Date: 20250114
  Serious: No
  Sender: Harrow Health
  Company Number: US-IMP-2024000911

PATIENT
  Age: 66 Year
  Sex: Female

DRUGS (7)
  1. VEVYE [Suspect]
     Active Substance: CYCLOSPORINE
     Indication: Dry eye
     Route: 047
     Dates: start: 20240929, end: 20241025
  2. Vaginal Estradiol [Concomitant]
     Indication: Product used for unknown indication
     Route: 065
  3. Joint Supplement [Concomitant]
     Indication: Product used for unknown indication
     Route: 065
  4. Brain Vitamins [Concomitant]
     Indication: Product used for unknown indication
     Route: 065
  5. Hydro Eye [Concomitant]
     Indication: Product used for unknown indication
     Route: 065
  6. S-Equal [Concomitant]
     Indication: Product used for unknown indication
     Route: 065
  7. FISH OIL [Concomitant]
     Active Substance: FISH OIL
     Indication: Product used for unknown indication
     Route: 065

REACTIONS (2)
  - Dry eye [Recovering/Resolving]
  - Drug ineffective [Unknown]

NARRATIVE: CASE EVENT DATE: 20240929
